FAERS Safety Report 10930641 (Version 4)
Quarter: 2015Q2

REPORT INFORMATION
  Report Type: Spontaneous
  Country: FR (occurrence: FR)
  Receive Date: 20150319
  Receipt Date: 20150408
  Transmission Date: 20150821
  Serious: Yes (Hospitalization)
  Sender: FDA-Public Use
  Company Number: FR-PFIZER INC-2015093278

PATIENT
  Age: 88 Year
  Sex: Female

DRUGS (20)
  1. AMLODIPINE [Suspect]
     Active Substance: AMLODIPINE BESYLATE
     Dosage: 70 MG, SINGLE
     Route: 048
     Dates: start: 20140911, end: 20140911
  2. INEXIUM [Suspect]
     Active Substance: ESOMEPRAZOLE
     Dosage: 140 MG, SINGLE
     Dates: start: 20140911, end: 20140911
  3. TRIATEC [Suspect]
     Active Substance: RAMIPRIL
     Dosage: 2.5 MG, 3X/DAY
  4. KARDEGIC [Concomitant]
     Active Substance: ASPIRIN LYSINE
     Dosage: 7 DF (SACHET), SINGLE
     Dates: start: 20140911
  5. XARELTO [Concomitant]
     Active Substance: RIVAROXABAN
     Dosage: 7 DF, SINGLE
     Dates: start: 20140911, end: 20140911
  6. ALDACTAZINE [Suspect]
     Active Substance: ALTHIAZIDE\SPIRONOLACTONE
     Dosage: 1 DF, DAILY
     Route: 048
  7. TAHOR [Concomitant]
     Active Substance: ATORVASTATIN CALCIUM
     Dosage: 40 MG, DAILY
     Dates: start: 20140911, end: 20140911
  8. BISOPROLOL FUMARATE. [Suspect]
     Active Substance: BISOPROLOL FUMARATE
     Dosage: 10 MG, DAILY
     Route: 048
  9. BISOPROLOL FUMARATE. [Suspect]
     Active Substance: BISOPROLOL FUMARATE
     Dosage: 70 MG, SINGLE
     Route: 048
     Dates: start: 20140911, end: 20140911
  10. INEXIUM [Suspect]
     Active Substance: ESOMEPRAZOLE
     Dosage: 20 MG, DAILY
  11. LASILIX [Suspect]
     Active Substance: FUROSEMIDE
     Dosage: 20 MG, DAILY
     Route: 048
  12. TAHOR [Concomitant]
     Active Substance: ATORVASTATIN CALCIUM
     Dosage: 280 MG, SINGLE
     Dates: start: 20140911, end: 20140911
  13. DIFFU K [Concomitant]
     Active Substance: POTASSIUM CHLORIDE
     Dosage: 1 DF, DAILY
     Dates: start: 20140911, end: 20140911
  14. XARELTO [Concomitant]
     Active Substance: RIVAROXABAN
     Dosage: 15 MG, DAILY
     Dates: start: 20140911, end: 20140911
  15. TRIATEC [Suspect]
     Active Substance: RAMIPRIL
     Dosage: 52.5 MG (21 DF), SINGLE
     Route: 048
     Dates: start: 20140911, end: 20140911
  16. DIFFU K [Concomitant]
     Active Substance: POTASSIUM CHLORIDE
     Dosage: 7 DF, SINGLE
     Dates: start: 20140911, end: 20140911
  17. ALDACTAZINE [Suspect]
     Active Substance: ALTHIAZIDE\SPIRONOLACTONE
     Dosage: 7 DF, SINGLE
     Route: 048
     Dates: start: 20140911, end: 20140911
  18. LASILIX [Suspect]
     Active Substance: FUROSEMIDE
     Dosage: 140 MG, SINGLE
     Route: 048
     Dates: start: 20140911, end: 20140911
  19. AMLODIPINE [Suspect]
     Active Substance: AMLODIPINE BESYLATE
     Dosage: 10 MG, DAILY
     Route: 048
  20. KARDEGIC [Concomitant]
     Active Substance: ASPIRIN LYSINE
     Dosage: 75 MG, UNK
     Dates: start: 20140911, end: 20140911

REACTIONS (4)
  - Toxicity to various agents [Recovered/Resolved]
  - Hypotension [Recovered/Resolved]
  - Acute kidney injury [Recovered/Resolved]
  - Bradycardia [Recovered/Resolved]

NARRATIVE: CASE EVENT DATE: 20140911
